FAERS Safety Report 21508359 (Version 1)
Quarter: 2022Q4

REPORT INFORMATION
  Report Type: Report from Study
  Country: CA (occurrence: CA)
  Receive Date: 20221026
  Receipt Date: 20221026
  Transmission Date: 20230112
  Serious: Yes (Hospitalization, Other)
  Sender: FDA-Public Use
  Company Number: CA-JNJFOC-20220425537

PATIENT
  Age: 49 Year
  Sex: Female

DRUGS (2)
  1. REMICADE [Suspect]
     Active Substance: INFLIXIMAB
     Indication: Crohn^s disease
     Route: 042
     Dates: start: 20120131
  2. REMICADE [Suspect]
     Active Substance: INFLIXIMAB
     Dosage: RELOAD AT 1000 MG 0,2,6
     Route: 042

REACTIONS (5)
  - Pyelonephritis [Unknown]
  - Skin infection [Unknown]
  - Leukaemia [Unknown]
  - Myelosuppression [Unknown]
  - Drug level decreased [Unknown]

NARRATIVE: CASE EVENT DATE: 20220801
